FAERS Safety Report 14250972 (Version 1)
Quarter: 2017Q4

REPORT INFORMATION
  Report Type: Spontaneous
  Country: US (occurrence: US)
  Receive Date: 20171205
  Receipt Date: 20171205
  Transmission Date: 20180321
  Serious: Yes (Other)
  Sender: FDA-Public Use
  Company Number: PHEH2017US038776

PATIENT
  Sex: Female

DRUGS (4)
  1. AMIODARONE HYDROCHLORIDE. [Suspect]
     Active Substance: AMIODARONE HYDROCHLORIDE
     Indication: ATRIAL FIBRILLATION
     Dosage: UNK
     Route: 048
     Dates: start: 201511
  2. AMIODARONE HYDROCHLORIDE. [Suspect]
     Active Substance: AMIODARONE HYDROCHLORIDE
     Indication: ATRIAL FIBRILLATION
     Route: 065
  3. AMIODARONE ZYDUS [Suspect]
     Active Substance: AMIODARONE
     Indication: ATRIAL FIBRILLATION
     Route: 065
  4. AMIODARONE TEVA [Suspect]
     Active Substance: AMIODARONE
     Indication: ATRIAL FIBRILLATION
     Route: 065

REACTIONS (20)
  - Ulcerative keratitis [Unknown]
  - Liver injury [Unknown]
  - Vitreous floaters [Unknown]
  - Coordination abnormal [Unknown]
  - Asthenia [Unknown]
  - Eye pain [Unknown]
  - Nervousness [Unknown]
  - Dyspnoea [Unknown]
  - Visual acuity reduced [Unknown]
  - Blindness [Unknown]
  - Visual impairment [Unknown]
  - Injury corneal [Unknown]
  - Liver function test abnormal [Unknown]
  - Fatigue [Unknown]
  - Thyroid disorder [Unknown]
  - Vision blurred [Unknown]
  - Acute respiratory distress syndrome [Unknown]
  - Cough [Unknown]
  - Thyroid function test abnormal [Unknown]
  - Product use in unapproved indication [Unknown]

NARRATIVE: CASE EVENT DATE: 201606
